FAERS Safety Report 8953356 (Version 1)
Quarter: 2012Q4

REPORT INFORMATION
  Report Type: 
  Country: US (occurrence: US)
  Receive Date: 20121206
  Receipt Date: 20121206
  Transmission Date: 20130627
  Serious: Yes (Death)
  Sender: FDA-Public Use
  Company Number: US-JNJFOC-2004068511

PATIENT
  Age: 31 Year
  Sex: Male

DRUGS (6)
  1. IBUPROFEN [Suspect]
  2. IBUPROFEN [Suspect]
     Indication: SUICIDE ATTEMPT
     Dosage: Daily Dose Text: UNSPECIFIED
  3. DIPHENHYDRAMINE [Suspect]
     Route: 048
  4. DIPHENHYDRAMINE [Suspect]
     Indication: SUICIDE ATTEMPT
     Dosage: Daily Dose Text: UNSPECIFIED
     Route: 048
  5. VERAPAMIL [Suspect]
     Indication: SUICIDE ATTEMPT
     Dosage: Daily Dose Text: UNSPECIFIED
  6. TRAZODONE [Suspect]
     Indication: SUICIDE ATTEMPT
     Dosage: Daily Dose Text: UNSPECIFIED

REACTIONS (6)
  - Completed suicide [Fatal]
  - Cardiac arrest [Fatal]
  - Coma [Fatal]
  - Pulmonary oedema [Fatal]
  - Hypotension [Fatal]
  - Bradycardia [Fatal]
